FAERS Safety Report 9137584 (Version 2)
Quarter: 2013Q1

REPORT INFORMATION
  Report Type: Spontaneous
  Country: ES (occurrence: ES)
  Receive Date: 20130304
  Receipt Date: 20130325
  Transmission Date: 20140127
  Serious: Yes (Hospitalization)
  Sender: FDA-Public Use
  Company Number: ES-ELI_LILLY_AND_COMPANY-ES201302009620

PATIENT
  Age: 79 Year
  Sex: Female
  Weight: 57 kg

DRUGS (7)
  1. FORSTEO [Suspect]
     Dosage: 20 UG, QD
     Route: 058
     Dates: start: 20130219, end: 20130224
  2. FROSINOR [Concomitant]
     Dosage: UNK, QD
     Route: 048
  3. MICARDIS                                /SCH/ [Concomitant]
     Indication: ANGINA PECTORIS
     Dosage: 40 MG, QD
     Route: 048
  4. BISOPROLOL                         /00802601/ [Concomitant]
     Indication: ANGINA PECTORIS
     Dosage: 1.25 MG, QD
     Route: 048
  5. OMEPRAZOL [Concomitant]
     Indication: GASTRITIS PROPHYLAXIS
     Dosage: 20 MG, QD
     Route: 048
  6. SINTROM [Concomitant]
     Indication: ANGINA PECTORIS
     Dosage: 4 MG, UNK
  7. ZYRTEC [Concomitant]
     Indication: PRURITUS
     Dosage: 5 MG, QD

REACTIONS (1)
  - Renal haemorrhage [Recovering/Resolving]
